FAERS Safety Report 9278838 (Version 1)
Quarter: 2013Q2

REPORT INFORMATION
  Report Type: Spontaneous
  Country: US (occurrence: US)
  Receive Date: 20130508
  Receipt Date: 20130508
  Transmission Date: 20140414
  Serious: Yes (Other)
  Sender: FDA-Public Use
  Company Number: PHHY2013US043362

PATIENT
  Age: 90 Year
  Sex: Female

DRUGS (2)
  1. RISPERIDONE [Suspect]
     Indication: DEMENTIA
  2. RISPERIDONE [Suspect]
     Indication: DEPRESSION

REACTIONS (6)
  - Emotional distress [Recovered/Resolved]
  - Eating disorder [Recovered/Resolved]
  - Dyskinesia [Recovered/Resolved]
  - Eructation [Recovered/Resolved]
  - Hiccups [Recovered/Resolved]
  - Withdrawal syndrome [Unknown]
